FAERS Safety Report 5594878-6 (Version None)
Quarter: 2007Q4

REPORT INFORMATION
  Report Type: 
  Country: None (occurrence: None)
  Receive Date: 20071218
  Receipt Date: 20070925
  Transmission Date: 20080405
  Serious: Yes (Hospitalization, Other)
  Sender: FDA-Public Use
  Company Number: 2007032149

PATIENT
  Age: 49 Year
  Sex: Male

DRUGS (2)
  1. BEXTRA [Suspect]
     Indication: PAIN
     Dosage: 20 MG (20 MG,1 IN 1 D),ORAL
     Route: 048
     Dates: start: 20021104
  2. BEXTRA [Suspect]
     Indication: TENDON RUPTURE
     Dosage: 20 MG (20 MG,1 IN 1 D),ORAL
     Route: 048
     Dates: start: 20021104

REACTIONS (3)
  - ATRIOVENTRICULAR BLOCK [None]
  - DEPRESSION [None]
  - MYOCARDIAL INFARCTION [None]
